FAERS Safety Report 5621940-1 (Version None)
Quarter: 2008Q1

REPORT INFORMATION
  Report Type: 
  Country: None (occurrence: None)
  Receive Date: 20080211
  Receipt Date: 20080130
  Transmission Date: 20080703
  Serious: Yes (Congenital Anomaly)
  Sender: FDA-Public Use
  Company Number: A0681915A

PATIENT
  Sex: Male

DRUGS (3)
  1. PAROXETINE HYDROCHLORIDE [Suspect]
     Indication: ANXIETY
     Dosage: 10MG PER DAY
     Dates: start: 20050815
  2. PRENATAL VITAMINS [Concomitant]
  3. ALBUTEROL [Concomitant]

REACTIONS (4)
  - ATRIAL SEPTAL DEFECT [None]
  - CARDIAC FAILURE CONGESTIVE [None]
  - DRUG EXPOSURE DURING PREGNANCY [None]
  - VENTRICULAR SEPTAL DEFECT [None]
